FAERS Safety Report 5136001-8 (Version None)
Quarter: 2006Q4

REPORT INFORMATION
  Report Type: 
  Country: None (occurrence: None)
  Receive Date: 20061020
  Receipt Date: 20061012
  Transmission Date: 20070319
  Serious: Yes (Life-Threatening, Hospitalization)
  Sender: FDA-Public Use
  Company Number: 2006125941

PATIENT
  Age: 69 Year
  Sex: Female
  Weight: 90 kg

DRUGS (2)
  1. CELEBREX [Suspect]
     Indication: PAIN IN EXTREMITY
     Dosage: 200 MG, ORAL
     Route: 048
     Dates: start: 20060714, end: 20060728
  2. LANSOPRAZOLE [Concomitant]
     Route: 048

REACTIONS (4)
  - POLYCYTHAEMIA VERA [None]
  - PULMONARY INFARCTION [None]
  - RENAL INFARCT [None]
  - SPLENIC INFARCTION [None]
